FAERS Safety Report 9381250 (Version 1)
Quarter: 2013Q3

REPORT INFORMATION
  Report Type: Spontaneous
  Country: US (occurrence: US)
  Receive Date: 20130703
  Receipt Date: 20130703
  Transmission Date: 20140515
  Serious: No
  Sender: FDA-Public Use
  Company Number: US-PFIZER INC-2013196955

PATIENT
  Age: 52 Year
  Sex: Female
  Weight: 92.06 kg

DRUGS (2)
  1. EFFEXOR XR [Suspect]
     Indication: ANXIETY
     Dosage: 225 MG, DAILY
     Dates: end: 201306
  2. SEROQUEL [Concomitant]
     Indication: SLEEP DISORDER
     Dosage: 100 MG, DAILY

REACTIONS (3)
  - Drug withdrawal syndrome [Unknown]
  - Tremor [Unknown]
  - Anxiety [Unknown]
